FAERS Safety Report 5659601-5 (Version None)
Quarter: 2008Q1

REPORT INFORMATION
  Report Type: 
  Country: None (occurrence: None)
  Receive Date: 20080311
  Receipt Date: 20080212
  Transmission Date: 20080703
  Serious: Yes (Hospitalization, Other)
  Sender: FDA-Public Use
  Company Number: PHHY2008US02132

PATIENT
  Age: 20 Year
  Sex: Male

DRUGS (20)
  1. CLOZARIL [Suspect]
     Dates: start: 20070201
  2. SEROQUEL [Concomitant]
  3. QUETIAPINE FUMARATE [Concomitant]
  4. LAMOTRIGINE [Concomitant]
     Dosage: 25MG
     Dates: start: 20070201
  5. ARIPIPRAZOLE [Concomitant]
     Dosage: 5MG
     Dates: start: 20070501
  6. DIPHENHYDRAMINE HCL [Concomitant]
  7. VALPROATE SODIUM [Concomitant]
     Dates: start: 20061001, end: 20070101
  8. ZOLPIDEM [Concomitant]
  9. CLONAZEPAM [Concomitant]
     Dates: start: 20070101
  10. CARBAMAZEPINE [Suspect]
     Dates: start: 20070101
  11. ZYPREXA [Suspect]
     Dosage: 5MG
     Dates: start: 20070101
  12. ZYPREXA [Suspect]
     Dosage: 15MG
     Dates: start: 20070401
  13. ZYPREXA [Suspect]
  14. ZYPREXA [Suspect]
     Dosage: 20MG
     Dates: start: 20071101
  15. ZYPREXA [Suspect]
     Dosage: 25MG
     Dates: start: 20071101
  16. ZYPREXA [Suspect]
     Dosage: 7.5MG
     Dates: start: 20070124, end: 20070101
  17. ZYPREXA [Suspect]
     Dosage: 15MG
     Dates: start: 20070228
  18. ZIPRASIDONE HCL [Concomitant]
     Dosage: 60MG
     Dates: start: 20070401
  19. CLONIDINE [Concomitant]
  20. CLOZAPINE [Concomitant]
     Dates: start: 20070201

REACTIONS (11)
  - ABNORMAL BEHAVIOUR [None]
  - BURNOUT SYNDROME [None]
  - DYSTONIA [None]
  - GAIT DISTURBANCE [None]
  - HAEMOPTYSIS [None]
  - INCONTINENCE [None]
  - MANIA [None]
  - MUSCULAR WEAKNESS [None]
  - PARESIS [None]
  - PNEUMONIA [None]
  - RASH GENERALISED [None]
